FAERS Safety Report 5283179-1 (Version None)
Quarter: 2007Q2

REPORT INFORMATION
  Report Type: 
  Country: None (occurrence: None)
  Receive Date: 20070402
  Receipt Date: 20070327
  Transmission Date: 20071010
  Serious: Yes (Death)
  Sender: FDA-Public Use
  Company Number: CA-GLAXOSMITHKLINE-A0644473A

PATIENT

DRUGS (2)
  1. ACYCLOVIR [Suspect]
     Indication: KERATITIS
     Dosage: 3PCT AT NIGHT
     Dates: start: 20060110
  2. EYE DROPS [Concomitant]
     Dosage: 1PCT TWICE PER DAY
     Dates: start: 20060123

REACTIONS (1)
  - DEATH [None]
